FAERS Safety Report 16698080 (Version 1)
Quarter: 2019Q3

REPORT INFORMATION
  Report Type: Spontaneous
  Country: US (occurrence: US)
  Receive Date: 20190628
  Receipt Date: 20190628
  Transmission Date: 20191004
  Serious: Yes (Other)
  Sender: FDA-Public Use
  Company Number: None

PATIENT
  Age: 57 Year
  Sex: Female
  Weight: 102.06 kg

DRUGS (5)
  1. AMLOD/OLMESA [Concomitant]
  2. AZOR [Suspect]
     Active Substance: AMLODIPINE BESYLATE\OLMESARTAN MEDOXOMIL
     Indication: BLOOD PRESSURE INCREASED
     Dosage: ?          OTHER STRENGTH:10/40;QUANTITY:10/40;?
     Route: 048
     Dates: start: 20190321
  3. VITAMIN [Concomitant]
     Active Substance: VITAMINS
  4. BIOTIN [Concomitant]
     Active Substance: BIOTIN
  5. MELOXICAM. [Concomitant]
     Active Substance: MELOXICAM

REACTIONS (9)
  - Product substitution issue [None]
  - Fatigue [None]
  - Gait disturbance [None]
  - Product quality issue [None]
  - Dyspnoea [None]
  - Joint swelling [None]
  - Dizziness [None]
  - Blood pressure increased [None]
  - Drug ineffective [None]

NARRATIVE: CASE EVENT DATE: 20190420
